FAERS Safety Report 9095817 (Version 1)
Quarter: 2013Q1

REPORT INFORMATION
  Report Type: Spontaneous
  Country: AT (occurrence: AT)
  Receive Date: 20130220
  Receipt Date: 20130220
  Transmission Date: 20140127
  Serious: Yes (Hospitalization, Other)
  Sender: FDA-Public Use
  Company Number: AT-PFIZER INC-2013054240

PATIENT
  Age: 24 Year
  Sex: Female

DRUGS (12)
  1. EFECTIN ER [Suspect]
     Dosage: 300 MG, UNK
     Dates: start: 2011
  2. INDERAL [Suspect]
     Dosage: 30 MG, UNK
     Dates: start: 2011
  3. SEROQUEL [Suspect]
     Dosage: 300 MG, UNK
     Dates: start: 201202, end: 20120329
  4. NOZINAN [Suspect]
     Dosage: 25 MG, UNK
     Dates: start: 20120323, end: 20120323
  5. EUTHYROX [Suspect]
     Dosage: 75 MG, UNK
     Dates: start: 2010
  6. DOMINAL [Suspect]
     Dosage: 80 MG, UNK
     Dates: start: 2011
  7. IVADAL [Suspect]
     Dosage: 10 MG, UNK
     Dates: start: 2011
  8. PRAXITEN [Suspect]
     Dosage: 55 MG, UNK
     Dates: start: 20120323, end: 20120324
  9. PRAXITEN [Suspect]
     Dosage: 75 MG, UNK
     Dates: start: 20120325, end: 20120328
  10. PRAXITEN [Suspect]
     Dosage: 45 MG, UNK
     Dates: start: 20120329, end: 20120329
  11. PRAXITEN [Suspect]
     Dosage: 90 MG, UNK
     Dates: start: 20120330, end: 20120404
  12. PRAXITEN [Suspect]
     Dosage: 45 MG, UNK
     Dates: start: 20120405

REACTIONS (2)
  - Urinary retention [Recovered/Resolved]
  - Drug level increased [Unknown]
